FAERS Safety Report 5122184-2 (Version None)
Quarter: 2006Q4

REPORT INFORMATION
  Report Type: 
  Country: None (occurrence: None)
  Receive Date: 20061006
  Receipt Date: 20060809
  Transmission Date: 20070319
  Serious: Yes (Other)
  Sender: FDA-Public Use
  Company Number: AU-ABBOTT-06P-008-0340047-00

PATIENT
  Sex: Female

DRUGS (3)
  1. EPILIM [Suspect]
     Indication: EPILEPSY
     Route: 048
     Dates: start: 20040101
  2. CLOBAZAM [Suspect]
     Indication: EPILEPSY
     Route: 048
  3. OXCARBAZEPINE [Concomitant]
     Indication: EPILEPSY
     Route: 048

REACTIONS (3)
  - CONVULSION [None]
  - DEVELOPMENTAL DELAY [None]
  - DRUG INEFFECTIVE [None]
